FAERS Safety Report 23058583 (Version 1)
Quarter: 2023Q4

REPORT INFORMATION
  Report Type: Spontaneous
  Country: US (occurrence: US)
  Receive Date: 20231012
  Receipt Date: 20231012
  Transmission Date: 20240109
  Serious: Yes (Hospitalization)
  Sender: FDA-Public Use
  Company Number: US-MYLANLABS-2023M1106650

PATIENT
  Age: 64 Year
  Sex: Female

DRUGS (1)
  1. HYDROCORTISONE [Suspect]
     Active Substance: HYDROCORTISONE
     Indication: Neck pain
     Dosage: UNK
     Route: 008

REACTIONS (4)
  - Endocarditis [Unknown]
  - Streptococcal infection [Unknown]
  - Mitral valve incompetence [Unknown]
  - Off label use [Unknown]
